FAERS Safety Report 21570278 (Version 1)
Quarter: 2022Q4

REPORT INFORMATION
  Report Type: Spontaneous
  Country: PL (occurrence: PL)
  Receive Date: 20221109
  Receipt Date: 20221109
  Transmission Date: 20230113
  Serious: Yes (Hospitalization)
  Sender: FDA-Public Use
  Company Number: PL-PFIZER INC-PV202200093694

PATIENT
  Age: 10 Year
  Sex: Male

DRUGS (3)
  1. RITUXIMAB [Suspect]
     Active Substance: RITUXIMAB
     Indication: Lymphoproliferative disorder
     Dosage: UNK
  2. TACROLIMUS [Concomitant]
     Active Substance: TACROLIMUS
     Dosage: 8 MG, DAILY
  3. PRAVASTATIN [Concomitant]
     Active Substance: PRAVASTATIN

REACTIONS (1)
  - Skin lesion [Unknown]
